FAERS Safety Report 16808565 (Version 1)
Quarter: 2019Q3

REPORT INFORMATION
  Report Type: Spontaneous
  Country: DE (occurrence: US)
  Receive Date: 20190916
  Receipt Date: 20190916
  Transmission Date: 20191005
  Serious: No
  Sender: FDA-Public Use
  Company Number: DE-CIPLA LTD.-2019US00086

PATIENT

DRUGS (5)
  1. CETIRIZINE [Suspect]
     Active Substance: CETIRIZINE HYDROCHLORIDE
     Indication: OFF LABEL USE
     Dosage: UNK, (FILM-COATED TABLET)
     Route: 065
  2. DEXAMETHASONE. [Suspect]
     Active Substance: DEXAMETHASONE
     Indication: PROPHYLAXIS
     Dosage: 10 MG, INJECTION ONCE BEFORE PATISIRAN
     Route: 042
     Dates: start: 20180530, end: 20180713
  3. IBUPROFEN. [Concomitant]
     Active Substance: IBUPROFEN
     Indication: PROPHYLAXIS
     Dosage: 400 MG, ONCE BEFORE PATISIRAN
     Route: 048
     Dates: start: 20180530, end: 20180713
  4. ALN-TTR02 [Suspect]
     Active Substance: PATISIRAN SODIUM
     Indication: HEREDITARY NEUROPATHIC AMYLOIDOSIS
     Dosage: 0.3 MG/KG, EVERY 21 DAYS (SOLUTION FOR INJECTION)
     Route: 042
     Dates: start: 20180530, end: 20180713
  5. CETIRIZINE [Suspect]
     Active Substance: CETIRIZINE HYDROCHLORIDE
     Indication: PROPHYLAXIS
     Dosage: 10 MG, (FILM-COATED TABLET ONCE BEFORE PATISIRAN)
     Route: 048
     Dates: start: 20180530, end: 20180713

REACTIONS (2)
  - Pain in extremity [Recovered/Resolved]
  - Off label use [Unknown]

NARRATIVE: CASE EVENT DATE: 20180530
